FAERS Safety Report 7006139-9 (Version None)
Quarter: 2010Q3

REPORT INFORMATION
  Report Type: 
  Country: None (occurrence: None)
  Receive Date: 20100921
  Receipt Date: 20100910
  Transmission Date: 20110219
  Serious: Yes (Death, Life-Threatening)
  Sender: FDA-Public Use
  Company Number: JP-PFIZER INC-2010093452

PATIENT
  Age: 34 Year
  Sex: Female
  Weight: 58 kg

DRUGS (5)
  1. SUNITINIB MALATE [Suspect]
     Indication: RENAL CELL CARCINOMA
     Dosage: 50 MG, 1X/DAY
     Route: 048
     Dates: start: 20090915, end: 20090924
  2. RIBOFLAVIN TAB [Concomitant]
     Indication: PROPHYLAXIS
     Dosage: 20 MG, 3X/DAY
     Route: 048
     Dates: start: 20090915, end: 20091013
  3. PYDOXAL [Concomitant]
     Indication: PROPHYLAXIS
     Dosage: 10 MG, 3X/DAY
     Route: 048
     Dates: start: 20090915, end: 20091013
  4. PASTARON SOFT [Concomitant]
     Indication: PROPHYLAXIS
     Dosage: 20 G, A FEW TIMES / DAY
     Route: 062
     Dates: start: 20090915, end: 20091013
  5. ALLOPURINOL [Concomitant]
     Dosage: 100 MG, 2X/DAY
     Route: 048
     Dates: start: 20090921, end: 20091008

REACTIONS (3)
  - DISEASE PROGRESSION [None]
  - PLATELET COUNT DECREASED [None]
  - RENAL CELL CARCINOMA [None]
